FAERS Safety Report 6525918-5 (Version None)
Quarter: 2010Q1

REPORT INFORMATION
  Report Type: 
  Country: None (occurrence: None)
  Receive Date: 20100104
  Receipt Date: 20091230
  Transmission Date: 20100710
  Serious: Yes (Hospitalization)
  Sender: FDA-Public Use
  Company Number: GB-PFIZER INC-2009315686

PATIENT
  Age: 66 Year
  Sex: Male

DRUGS (5)
  1. CHAMPIX [Suspect]
     Indication: SMOKING CESSATION THERAPY
     Dosage: 1 MG, 2X/DAY
     Route: 048
     Dates: start: 20091006, end: 20091127
  2. ACETYLSALICYLIC ACID [Concomitant]
  3. LEVOTHYROXINE SODIUM [Concomitant]
     Dosage: 50 MG, UNK
  4. RANITIDINE [Concomitant]
  5. SIMVASTATIN [Concomitant]
     Dosage: 40 MG, UNK

REACTIONS (1)
  - SUPRAVENTRICULAR TACHYCARDIA [None]
